FAERS Safety Report 5615548-1 (Version None)
Quarter: 2008Q1

REPORT INFORMATION
  Report Type: 
  Country: None (occurrence: None)
  Receive Date: 20080204
  Receipt Date: 20080204
  Transmission Date: 20080703
  Serious: Yes (Hospitalization)
  Sender: FDA-Public Use
  Company Number: None

PATIENT
  Sex: Male
  Weight: 60.9 kg

DRUGS (2)
  1. CISPLATIN [Suspect]
     Dosage: 130 MG
     Dates: start: 20080122
  2. TAXOTERE [Suspect]
     Dosage: 130 MG
     Dates: start: 20080122

REACTIONS (4)
  - ABDOMINAL DISCOMFORT [None]
  - FATIGUE [None]
  - NAUSEA [None]
  - VOMITING [None]
